FAERS Safety Report 19816860 (Version 1)
Quarter: 2021Q3

REPORT INFORMATION
  Report Type: Spontaneous
  Country: NL (occurrence: NL)
  Receive Date: 20210910
  Receipt Date: 20210910
  Transmission Date: 20211014
  Serious: Yes (Other)
  Sender: FDA-Public Use
  Company Number: NL-TEVA-2021-NL-1950331

PATIENT
  Age: 74 Year
  Sex: Male
  Weight: 93.8 kg

DRUGS (2)
  1. AZITROMYCINE TABLET 500MG / BRAND NAME NOT SPECIFIED [Suspect]
     Active Substance: AZITHROMYCIN
     Indication: RESPIRATORY TRACT INFECTION
     Dosage: 500 MILLIGRAM DAILY; 1DD1
     Dates: start: 20210818, end: 20210820
  2. PARACETAMOL TABLET  500MG / BPH PARACETAMOL TABLET 500MG [Concomitant]
     Dosage: 500 MG (MILLIGRAM)THERAPY START DATE :THERAPY END DATE :ASKU

REACTIONS (2)
  - Hepatic necrosis [Recovering/Resolving]
  - Transaminases increased [Recovering/Resolving]

NARRATIVE: CASE EVENT DATE: 20210821
